FAERS Safety Report 5033841-0 (Version None)
Quarter: 2006Q2

REPORT INFORMATION
  Report Type: 
  Country: None (occurrence: None)
  Receive Date: 20060623
  Receipt Date: 20060608
  Transmission Date: 20061013
  Serious: Yes (Other)
  Sender: FDA-Public Use
  Company Number: US-AVENTIS-200615109US

PATIENT

DRUGS (1)
  1. KETEK [Suspect]
     Dosage: DOSE: UNK
     Route: 048

REACTIONS (3)
  - HEPATOCELLULAR DAMAGE [None]
  - NAUSEA [None]
  - VOMITING [None]
